FAERS Safety Report 11212402 (Version 3)
Quarter: 2015Q3

REPORT INFORMATION
  Report Type: Spontaneous
  Country: US (occurrence: US)
  Receive Date: 20150623
  Receipt Date: 20150724
  Transmission Date: 20151125
  Serious: Yes (Hospitalization)
  Sender: FDA-Public Use
  Company Number: US-CELGENE-USA-2015062972

PATIENT
  Age: 68 Year
  Sex: Male
  Weight: 109.87 kg

DRUGS (3)
  1. REVLIMID [Suspect]
     Active Substance: LENALIDOMIDE
     Indication: PLASMA CELL MYELOMA
     Route: 048
     Dates: start: 201204, end: 2012
  2. REVLIMID [Suspect]
     Active Substance: LENALIDOMIDE
     Dosage: 10-20MG
     Route: 048
     Dates: start: 201208, end: 201211
  3. REVLIMID [Suspect]
     Active Substance: LENALIDOMIDE
     Route: 048
     Dates: start: 201211, end: 20150512

REACTIONS (1)
  - Pneumothorax spontaneous [Recovered/Resolved]

NARRATIVE: CASE EVENT DATE: 201502
